FAERS Safety Report 10378230 (Version 1)
Quarter: 2014Q3

REPORT INFORMATION
  Report Type: Spontaneous
  Country: US (occurrence: None)
  Receive Date: 20140811
  Receipt Date: 20140811
  Transmission Date: 20150326
  Serious: Yes (Other)
  Sender: FDA-Public Use
  Company Number: None

PATIENT
  Age: 38 Year
  Sex: Male
  Weight: 77.11 kg

DRUGS (1)
  1. BUPROPION XL [Suspect]
     Active Substance: BUPROPION

REACTIONS (4)
  - Product quality issue [None]
  - Drug ineffective [None]
  - Depression [None]
  - Product substitution issue [None]

NARRATIVE: CASE EVENT DATE: 20140808
